FAERS Safety Report 7968873-3 (Version None)
Quarter: 2011Q4

REPORT INFORMATION
  Report Type: 
  Country: None (occurrence: None)
  Receive Date: 20111209
  Receipt Date: 20111205
  Transmission Date: 20120403
  Serious: Yes (Hospitalization)
  Sender: FDA-Public Use
  Company Number: CA-ABBOTT-11P-028-0874202-00

PATIENT
  Sex: Female

DRUGS (1)
  1. HUMIRA [Suspect]
     Indication: RHEUMATOID ARTHRITIS
     Route: 058
     Dates: start: 20100915

REACTIONS (5)
  - LOCALISED INFECTION [None]
  - CHEST PAIN [None]
  - CYSTITIS [None]
  - TROPONIN INCREASED [None]
  - ANAEMIA [None]
